FAERS Safety Report 9684747 (Version 2)
Quarter: 2013Q4

REPORT INFORMATION
  Report Type: Spontaneous
  Country: US (occurrence: US)
  Receive Date: 20131112
  Receipt Date: 20131115
  Transmission Date: 20140711
  Serious: Yes (Hospitalization)
  Sender: FDA-Public Use
  Company Number: US-B.I. PHARMACEUTICALS,INC./RIDGEFIELD-2013-BI-36435BP

PATIENT
  Age: 78 Year
  Sex: Male
  Weight: 58.97 kg

DRUGS (7)
  1. PRADAXA [Suspect]
     Indication: ATRIAL FIBRILLATION
     Dosage: 300 MG
     Route: 048
     Dates: start: 2010, end: 201206
  2. PRADAXA [Suspect]
     Dosage: 150 MG
     Route: 048
     Dates: start: 201206
  3. POTASSIUM [Concomitant]
     Indication: SUPPLEMENTATION THERAPY
     Dosage: 1 ANZ
     Route: 048
  4. FUROSEMIDE [Concomitant]
     Indication: POLYURIA
     Dosage: 40 MG
     Route: 048
     Dates: start: 2008
  5. IMMODIUM [Concomitant]
     Indication: DIARRHOEA
     Dosage: 3 ANZ
     Route: 048
     Dates: start: 2008
  6. LANOXIN [Concomitant]
     Indication: CARDIAC DISORDER
     Dosage: 0.125 MG
     Route: 048
     Dates: start: 1983
  7. FLOMAX [Concomitant]
     Indication: PROSTATIC DISORDER
     Dosage: 4 MG
     Route: 048

REACTIONS (2)
  - Rectal haemorrhage [Recovered/Resolved]
  - Rectal haemorrhage [Recovered/Resolved]
